FAERS Safety Report 8965047 (Version 1)
Quarter: 2012Q4

REPORT INFORMATION
  Report Type: 
  Country: US (occurrence: US)
  Receive Date: 20121213
  Receipt Date: 20121213
  Transmission Date: 20130627
  Serious: No
  Sender: FDA-Public Use
  Company Number: US-BRISTOL-MYERS SQUIBB COMPANY-16362030

PATIENT
  Age: 76 Year
  Sex: Female

DRUGS (5)
  1. PRAVASTATIN SODIUM [Suspect]
     Indication: STENT PLACEMENT
  2. PLAVIX [Suspect]
     Indication: STENT PLACEMENT
     Dosage: Plavix film coated tabs
     Route: 048
     Dates: start: 20111007
  3. SYNTHROID [Concomitant]
  4. CALCIUM [Concomitant]
  5. METOPROLOL [Concomitant]

REACTIONS (3)
  - Hepatic enzyme increased [Unknown]
  - Muscle spasms [Unknown]
  - Contusion [Unknown]
